FAERS Safety Report 22306232 (Version 1)
Quarter: 2023Q2

REPORT INFORMATION
  Report Type: Spontaneous
  Country: US (occurrence: US)
  Receive Date: 20230511
  Receipt Date: 20230511
  Transmission Date: 20230722
  Serious: No
  Sender: FDA-Public Use
  Company Number: US-BRISTOL-MYERS SQUIBB COMPANY-2023-066585

PATIENT
  Age: 72 Year
  Sex: Female
  Weight: 85.72 kg

DRUGS (1)
  1. REVLIMID [Suspect]
     Active Substance: LENALIDOMIDE
     Indication: Polycythaemia vera
     Dosage: 21D OF 28DAYS
     Route: 048
     Dates: start: 20230301

REACTIONS (3)
  - Decreased appetite [Recovering/Resolving]
  - Headache [Recovering/Resolving]
  - Off label use [Unknown]
